FAERS Safety Report 6644833-X (Version None)
Quarter: 2010Q1

REPORT INFORMATION
  Report Type: 
  Country: None (occurrence: None)
  Receive Date: 20100322
  Receipt Date: 20100311
  Transmission Date: 20100710
  Serious: Yes (Hospitalization, Other)
  Sender: FDA-Public Use
  Company Number: US-PFIZER INC-2010014018

PATIENT
  Sex: Male
  Weight: 74.389 kg

DRUGS (5)
  1. SUTENT [Suspect]
     Indication: SARCOMA
     Dosage: 50 MG, 1X/DAY
     Route: 048
     Dates: start: 20090812
  2. POTASSIUM CHLORIDE [Concomitant]
     Dosage: 30 MG, 1X/DAY
  3. MAGNESIUM SULFATE [Concomitant]
     Dosage: 125 MG, 1X/DAY
  4. ZOCOR [Concomitant]
     Dosage: 80 MG, 1X/DAY
  5. NORVASC [Concomitant]
     Dosage: 10 MG, 1X/DAY

REACTIONS (15)
  - ABDOMINAL DISTENSION [None]
  - ANAL ABSCESS [None]
  - ANORECTAL DISORDER [None]
  - DEHYDRATION [None]
  - DIARRHOEA [None]
  - FLATULENCE [None]
  - GASTROINTESTINAL SOUNDS ABNORMAL [None]
  - HYPERTENSION [None]
  - ILEUS [None]
  - MYALGIA [None]
  - OEDEMA PERIPHERAL [None]
  - PALMAR-PLANTAR ERYTHRODYSAESTHESIA SYNDROME [None]
  - RECTAL TENESMUS [None]
  - SKIN EXFOLIATION [None]
  - URINARY TRACT INFECTION [None]
